FAERS Safety Report 8894858 (Version 1)
Quarter: 2012Q4

REPORT INFORMATION
  Report Type: 
  Country: MY (occurrence: MY)
  Receive Date: 20121108
  Receipt Date: 20121108
  Transmission Date: 20130627
  Serious: Yes (Hospitalization)
  Sender: FDA-Public Use
  Company Number: MY-BRISTOL-MYERS SQUIBB COMPANY-17095878

PATIENT
  Age: 72 Year
  Sex: Male

DRUGS (5)
  1. BARACLUDE [Suspect]
  2. PANTOPRAZOLE [Concomitant]
  3. SPIRONOLACTONE [Concomitant]
  4. INSULIN [Concomitant]
  5. PROPRANOLOL [Concomitant]

REACTIONS (3)
  - Dehydration [Unknown]
  - Hepatic encephalopathy [Not Recovered/Not Resolved]
  - Blood lactic acid increased [Not Recovered/Not Resolved]
